FAERS Safety Report 6067596-8 (Version None)
Quarter: 2009Q1

REPORT INFORMATION
  Report Type: 
  Country: None (occurrence: None)
  Receive Date: 20090205
  Receipt Date: 20090122
  Transmission Date: 20090719
  Serious: Yes (Death)
  Sender: FDA-Public Use
  Company Number: KR-GENENTECH-275662

PATIENT
  Sex: Female

DRUGS (6)
  1. BEVACIZUMAB [Suspect]
     Indication: BREAST CANCER
     Dosage: 625 MG, Q3W
     Route: 042
     Dates: start: 20090102, end: 20090102
  2. DOXORUBICIN HCL [Suspect]
     Indication: BREAST CANCER
     Dosage: 91 MG, Q3W
     Route: 042
     Dates: start: 20090102, end: 20090102
  3. CYCLOPHOSPHAMIDE [Suspect]
     Indication: BREAST CANCER
     Dosage: 912 MG, Q3W
     Route: 042
     Dates: start: 20090102, end: 20090102
  4. ATORVASTATIN [Concomitant]
     Indication: DRUG USE FOR UNKNOWN INDICATION
     Dosage: UNK
     Dates: start: 20081231, end: 20090112
  5. DEXAMETHASONE [Concomitant]
     Indication: DRUG USE FOR UNKNOWN INDICATION
     Dosage: UNK
     Dates: start: 20090103, end: 20090105
  6. APREPITANT [Concomitant]
     Indication: DRUG USE FOR UNKNOWN INDICATION
     Dosage: UNK
     Dates: start: 20090103, end: 20090104

REACTIONS (1)
  - DEATH [None]
